FAERS Safety Report 5840604-2 (Version None)
Quarter: 2008Q3

REPORT INFORMATION
  Report Type: 
  Country: None (occurrence: None)
  Receive Date: 20080811
  Receipt Date: 20080110
  Transmission Date: 20090109
  Serious: Yes (Death)
  Sender: FDA-Public Use
  Company Number: ES-BAYER-200717115GPV

PATIENT
  Age: 69 Year
  Sex: Female

DRUGS (1)
  1. ULTRAVIST 300 [Suspect]
     Indication: COLON CANCER METASTATIC
     Route: 042
     Dates: start: 20071122, end: 20071122

REACTIONS (3)
  - CARDIAC ARREST [None]
  - DIZZINESS [None]
  - SYNCOPE VASOVAGAL [None]
